FAERS Safety Report 8491189-6 (Version None)
Quarter: 2012Q3

REPORT INFORMATION
  Report Type: 
  Country: None (occurrence: None)
  Receive Date: 20120706
  Receipt Date: 20120626
  Transmission Date: 20120928
  Serious: Yes (Other)
  Sender: FDA-Public Use
  Company Number: CA-JNJFOC-20120613342

PATIENT
  Sex: Male

DRUGS (8)
  1. VITAMIN D [Concomitant]
     Route: 065
  2. IMODIUM [Concomitant]
     Route: 065
  3. VITAMIN B-12 [Concomitant]
     Dosage: 2/52
     Route: 065
  4. CALCIUM [Concomitant]
     Route: 065
  5. MULTIVITAMINES [Concomitant]
     Route: 065
  6. REMICADE [Suspect]
     Indication: CROHN'S DISEASE
     Route: 042
     Dates: start: 20120122
  7. SYNTHROID [Concomitant]
     Route: 065
  8. VIMOVO [Concomitant]
     Dosage: 500/20 BID PRN
     Route: 065

REACTIONS (2)
  - INTRACARDIAC THROMBUS [None]
  - PNEUMONIA [None]
